FAERS Safety Report 6936756-3 (Version None)
Quarter: 2010Q3

REPORT INFORMATION
  Report Type: 
  Country: None (occurrence: None)
  Receive Date: 20100823
  Receipt Date: 20100813
  Transmission Date: 20110219
  Serious: Yes (Death)
  Sender: FDA-Public Use
  Company Number: KR-JNJFOC-20100806718

PATIENT
  Sex: Male

DRUGS (3)
  1. TOPIRAMATE [Suspect]
     Indication: TEMPORAL LOBE EPILEPSY
     Dosage: MAINTENANCE DOSE
     Route: 065
  2. TOPIRAMATE [Suspect]
     Route: 065
  3. ANTI-EPILEPTIC DRUG UNSPECIFIED [Suspect]
     Indication: TEMPORAL LOBE EPILEPSY
     Route: 065

REACTIONS (1)
  - COMPLETED SUICIDE [None]
